FAERS Safety Report 6660930-7 (Version None)
Quarter: 2010Q1

REPORT INFORMATION
  Report Type: 
  Country: None (occurrence: None)
  Receive Date: 20100331
  Receipt Date: 20100309
  Transmission Date: 20100710
  Serious: No
  Sender: FDA-Public Use
  Company Number: US-BIOGENIDEC-2010BI008169

PATIENT
  Age: 21 Year
  Sex: Female

DRUGS (1)
  1. TYSABRI [Suspect]
     Indication: MULTIPLE SCLEROSIS
     Route: 042
     Dates: start: 20081013

REACTIONS (6)
  - AGORAPHOBIA [None]
  - BIPOLAR DISORDER [None]
  - FALL [None]
  - HAND FRACTURE [None]
  - MALAISE [None]
  - PYREXIA [None]
